FAERS Safety Report 7755091-7 (Version None)
Quarter: 2011Q3

REPORT INFORMATION
  Report Type: 
  Country: None (occurrence: None)
  Receive Date: 20110914
  Receipt Date: 20110906
  Transmission Date: 20111222
  Serious: Yes (Hospitalization)
  Sender: FDA-Public Use
  Company Number: 1000023530

PATIENT
  Age: 55 Year
  Sex: Male

DRUGS (7)
  1. DILTIAZEM HCL [Concomitant]
  2. CITALOPRAM HYDROBROMIDE [Suspect]
     Indication: DEPRESSION
     Dosage: 40 MG (40 MG,1 IN 1 D),ORAL
     Route: 048
     Dates: start: 20070101
  3. CITALOPRAM HYDROBROMIDE [Suspect]
     Indication: DEPRESSION
     Dosage: 60 MG (60 MG, 1 IN 1 D),ORAL
     Route: 048
  4. POTASSIUM [Concomitant]
  5. LISINOPRIL [Concomitant]
  6. AMIODARONE HCL [Concomitant]
  7. GEMFIBROZIL [Concomitant]

REACTIONS (3)
  - CONDITION AGGRAVATED [None]
  - ATRIAL FLUTTER [None]
  - ATRIAL FIBRILLATION [None]
